APPROVED DRUG PRODUCT: GUAIFENESIN AND DEXTROMETHORPHAN HYDROBROMIDE
Active Ingredient: DEXTROMETHORPHAN HYDROBROMIDE; GUAIFENESIN
Strength: 60MG;1.2GM
Dosage Form/Route: TABLET, EXTENDED RELEASE;ORAL
Application: A091070 | Product #002
Applicant: ACTAVIS LABORATORIES FL INC AN INDIRECT WHOLLY OWNED SUB OF TEVA PHARMACEUTICALS USA INC
Approved: Aug 31, 2015 | RLD: No | RS: No | Type: OTC